FAERS Safety Report 5662026-X (Version None)
Quarter: 2008Q1

REPORT INFORMATION
  Report Type: 
  Country: None (occurrence: None)
  Receive Date: 20080312
  Receipt Date: 20080229
  Transmission Date: 20080703
  Serious: Yes (Other)
  Sender: FDA-Public Use
  Company Number: GB-WYE-H02997508

PATIENT
  Age: 60 Year
  Sex: Female

DRUGS (2)
  1. PANTOPRAZOLE SODIUM [Suspect]
     Indication: GASTROOESOPHAGEAL REFLUX DISEASE
     Route: 048
     Dates: start: 20031101
  2. PANTOPRAZOLE SODIUM [Suspect]
     Indication: DYSPEPSIA

REACTIONS (3)
  - DIABETES INSIPIDUS [None]
  - THIRST [None]
  - WEIGHT DECREASED [None]
